FAERS Safety Report 5848899-6 (Version None)
Quarter: 2008Q3

REPORT INFORMATION
  Report Type: 
  Country: None (occurrence: None)
  Receive Date: 20080818
  Receipt Date: 20080808
  Transmission Date: 20090109
  Serious: Yes (Other)
  Sender: FDA-Public Use
  Company Number: FR-PFIZER INC-2008066822

PATIENT
  Sex: Female

DRUGS (15)
  1. CELEBREX [Suspect]
     Dosage: DAILY DOSE:200MG
     Route: 048
     Dates: start: 20080527, end: 20080603
  2. ACETAMINOPHEN [Concomitant]
     Dates: start: 20080523, end: 20080525
  3. ACETAMINOPHEN [Concomitant]
     Dates: start: 20080525, end: 20080529
  4. ACETAMINOPHEN [Concomitant]
  5. ENOXAPARIN SODIUM [Concomitant]
     Dates: start: 20080523, end: 20080527
  6. TINZAPARIN SODIUM [Concomitant]
  7. BROMAZEPAM [Concomitant]
     Dates: start: 20080522, end: 20080530
  8. PANTOPRAZOLE SODIUM [Concomitant]
  9. ALPRAZOLAM [Concomitant]
  10. HYDROXYZINE [Concomitant]
  11. LACTULOSE [Concomitant]
     Dates: start: 20080524, end: 20080527
  12. GABAPENTIN [Concomitant]
  13. GABAPENTIN [Concomitant]
  14. TETRAZEPAM [Concomitant]
     Dates: start: 20080527, end: 20080529
  15. TETRAZEPAM [Concomitant]

REACTIONS (4)
  - HEPATIC FUNCTION ABNORMAL [None]
  - MALAISE [None]
  - OLIGURIA [None]
  - TACHYCARDIA [None]
